FAERS Safety Report 9367052 (Version 1)
Quarter: 2013Q2

REPORT INFORMATION
  Report Type: Spontaneous
  Country: FR (occurrence: FR)
  Receive Date: 20130625
  Receipt Date: 20130625
  Transmission Date: 20140414
  Serious: Yes (Hospitalization)
  Sender: FDA-Public Use
  Company Number: FR-TEVA-413005ISR

PATIENT
  Age: 27 Year
  Sex: Female

DRUGS (2)
  1. MODIODAL [Suspect]
     Indication: NARCOLEPSY
     Dosage: 200 MILLIGRAM DAILY;
     Route: 048
     Dates: start: 2007
  2. LYRICA [Suspect]
     Route: 048

REACTIONS (6)
  - General physical health deterioration [Unknown]
  - Mouth ulceration [Unknown]
  - Genital ulceration [Unknown]
  - Raynaud^s phenomenon [Unknown]
  - Sjogren^s syndrome [Unknown]
  - Urinary retention [Unknown]
